FAERS Safety Report 8785220 (Version 1)
Quarter: 2012Q4

REPORT INFORMATION
  Report Type: 
  Country: US (occurrence: US)
  Receive Date: 20120914
  Receipt Date: 20120914
  Transmission Date: 20130627
  Serious: Yes (Hospitalization)
  Sender: FDA-Public Use
  Company Number: US-JNJFOC-20120902609

PATIENT
  Age: 48 Year
  Sex: Female
  Weight: 63.5 kg

DRUGS (5)
  1. SANDOZ FENTANYL TRANSDERMAL SYSTEM [Suspect]
     Indication: PAIN
     Route: 062
     Dates: start: 20120903
  2. SANDOZ FENTANYL TRANSDERMAL SYSTEM [Suspect]
     Indication: PAIN
     Route: 062
     Dates: end: 20120901
  3. SANDOZ FENTANYL TRANSDERMAL SYSTEM [Suspect]
     Indication: SICKLE CELL ANAEMIA
     Route: 062
     Dates: start: 20120903
  4. SANDOZ FENTANYL TRANSDERMAL SYSTEM [Suspect]
     Indication: SICKLE CELL ANAEMIA
     Route: 062
     Dates: end: 20120901
  5. OXYCODONE [Concomitant]
     Indication: BREAKTHROUGH PAIN
     Dosage: as needed
     Route: 048

REACTIONS (4)
  - Poor quality drug administered [Recovered/Resolved]
  - Feeling abnormal [Recovered/Resolved]
  - Pain [Recovered/Resolved]
  - Pain [Recovered/Resolved]
